FAERS Safety Report 10572557 (Version 1)
Quarter: 2014Q4

REPORT INFORMATION
  Report Type: Report from Study
  Country: US (occurrence: US)
  Receive Date: 20141110
  Receipt Date: 20141110
  Transmission Date: 20150529
  Serious: Yes (Hospitalization, Other)
  Sender: FDA-Public Use
  Company Number: US-AMGEN-USASL2014085476

PATIENT
  Age: 56 Year
  Sex: Female

DRUGS (1)
  1. ENBREL [Suspect]
     Active Substance: ETANERCEPT
     Indication: RHEUMATOID ARTHRITIS
     Dosage: 50 MG, QWK
     Route: 065
     Dates: start: 20120901

REACTIONS (14)
  - Herpes zoster [Recovered/Resolved]
  - Abdominal pain upper [Recovered/Resolved]
  - Peripheral coldness [Recovered/Resolved]
  - Asthenia [Not Recovered/Not Resolved]
  - Rash pruritic [Recovered/Resolved]
  - Arthralgia [Not Recovered/Not Resolved]
  - Blister [Recovered/Resolved]
  - Drug ineffective [Not Recovered/Not Resolved]
  - Urinary tract infection [Unknown]
  - Musculoskeletal chest pain [Not Recovered/Not Resolved]
  - Pain in extremity [Recovered/Resolved]
  - Blood urine present [Unknown]
  - Insomnia [Recovered/Resolved]
  - Arthritis [Not Recovered/Not Resolved]

NARRATIVE: CASE EVENT DATE: 2012
